FAERS Safety Report 7442041-6 (Version None)
Quarter: 2011Q2

REPORT INFORMATION
  Report Type: 
  Country: None (occurrence: None)
  Receive Date: 20110428
  Receipt Date: 20100217
  Transmission Date: 20111010
  Serious: No
  Sender: FDA-Public Use
  Company Number: US-BAYER-201015188NA

PATIENT
  Age: 22 Year
  Sex: Female
  Weight: 52.273 kg

DRUGS (3)
  1. ASPIRIN [Concomitant]
  2. YAZ [Suspect]
     Indication: ACNE
  3. YAZ [Suspect]
     Indication: CONTRACEPTION
     Dosage: UNK
     Dates: start: 20090901

REACTIONS (2)
  - MALAISE [None]
  - AMENORRHOEA [None]
